FAERS Safety Report 6814190-4 (Version None)
Quarter: 2010Q2

REPORT INFORMATION
  Report Type: 
  Country: None (occurrence: None)
  Receive Date: 20100629
  Receipt Date: 20100614
  Transmission Date: 20101027
  Serious: Yes (Disabling)
  Sender: FDA-Public Use
  Company Number: AMAG201000263

PATIENT
  Age: 71 Year
  Sex: Female
  Weight: 90.7 kg

DRUGS (14)
  1. FERAHEME [Suspect]
     Indication: IRON DEFICIENCY ANAEMIA
     Dosage: 510 MG, SINGLE, INTRAVENOUS, 510 MG, SINGLE, INTRAVENOUS
     Route: 042
     Dates: start: 20100505, end: 20100505
  2. FERAHEME [Suspect]
     Indication: RENAL FAILURE CHRONIC
     Dosage: 510 MG, SINGLE, INTRAVENOUS, 510 MG, SINGLE, INTRAVENOUS
     Route: 042
     Dates: start: 20100505, end: 20100505
  3. FERAHEME [Suspect]
     Indication: IRON DEFICIENCY ANAEMIA
     Dosage: 510 MG, SINGLE, INTRAVENOUS, 510 MG, SINGLE, INTRAVENOUS
     Route: 042
     Dates: start: 20100510, end: 20100510
  4. FERAHEME [Suspect]
     Indication: RENAL FAILURE CHRONIC
     Dosage: 510 MG, SINGLE, INTRAVENOUS, 510 MG, SINGLE, INTRAVENOUS
     Route: 042
     Dates: start: 20100510, end: 20100510
  5. ARANESP [Concomitant]
  6. COREG [Concomitant]
  7. HYDRALAZINE HCL [Concomitant]
  8. LEVOXYL [Concomitant]
  9. BUMEX [Concomitant]
  10. CLONIDINE [Concomitant]
  11. POTASSIUM (POTASSIUM GLUCONATE) [Concomitant]
  12. ALLOPURINOL [Concomitant]
  13. TEKTURNA [Concomitant]
  14. COUMADIN SODIUM (WARFARIN SODIUM) [Concomitant]

REACTIONS (6)
  - ARTHRALGIA [None]
  - OEDEMA PERIPHERAL [None]
  - PAIN IN EXTREMITY [None]
  - SKIN DISCOLOURATION [None]
  - SKIN ULCER [None]
  - WALKING DISABILITY [None]
